FAERS Safety Report 6865418-6 (Version None)
Quarter: 2010Q3

REPORT INFORMATION
  Report Type: 
  Country: None (occurrence: None)
  Receive Date: 20100721
  Receipt Date: 20080419
  Transmission Date: 20110219
  Serious: No
  Sender: FDA-Public Use
  Company Number: US-PFIZER INC-2008034948

PATIENT
  Sex: Female
  Weight: 65.5 kg

DRUGS (12)
  1. CHANTIX [Suspect]
     Indication: SMOKING CESSATION THERAPY
     Dates: start: 20080408
  2. PAXIL [Concomitant]
  3. EFFEXOR [Concomitant]
  4. ZYPREXA [Concomitant]
  5. MAXZIDE [Concomitant]
  6. POTASSIUM CHLORIDE [Concomitant]
  7. LEVOTHYROXINE SODIUM [Concomitant]
  8. KLONOPIN [Concomitant]
  9. FOLTX [Concomitant]
  10. RITALIN [Concomitant]
  11. ROBAXIN [Concomitant]
  12. IBANDRONATE SODIUM [Concomitant]

REACTIONS (1)
  - DRUG INEFFECTIVE [None]
